FAERS Safety Report 5733227-7 (Version None)
Quarter: 2008Q2

REPORT INFORMATION
  Report Type: 
  Country: None (occurrence: None)
  Receive Date: 20080509
  Receipt Date: 20080430
  Transmission Date: 20081010
  Serious: Yes (Hospitalization)
  Sender: FDA-Public Use
  Company Number: US-ELI_LILLY_AND_COMPANY-US200804007442

PATIENT
  Sex: Female

DRUGS (4)
  1. FORTEO [Suspect]
  2. FORTEO [Suspect]
  3. CALCIUM [Concomitant]
     Indication: SUPPLEMENTATION THERAPY
  4. VITAMIN D [Concomitant]

REACTIONS (2)
  - ASTHMA [None]
  - CHRONIC OBSTRUCTIVE PULMONARY DISEASE [None]
